FAERS Safety Report 19961811 (Version 1)
Quarter: 2021Q4

REPORT INFORMATION
  Report Type: Spontaneous
  Country: IN (occurrence: IN)
  Receive Date: 20211018
  Receipt Date: 20211018
  Transmission Date: 20220303
  Serious: Yes (Hospitalization, Other)
  Sender: FDA-Public Use
  Company Number: IN-CIPLA LTD.-2021IN06770

PATIENT

DRUGS (1)
  1. AMLODIPINE [Suspect]
     Active Substance: AMLODIPINE BESYLATE
     Dosage: 400 MILLIGRAM, TOTAL
     Route: 048

REACTIONS (11)
  - Toxicity to various agents [Recovering/Resolving]
  - Intentional overdose [Unknown]
  - Respiratory failure [Recovering/Resolving]
  - Suicide attempt [Unknown]
  - Leukocytosis [Recovering/Resolving]
  - Abdominal pain upper [Recovering/Resolving]
  - Tachypnoea [Recovering/Resolving]
  - Vomiting [Recovering/Resolving]
  - Sinus tachycardia [Recovering/Resolving]
  - Hypotension [Recovering/Resolving]
  - Non-cardiogenic pulmonary oedema [Recovered/Resolved]
